FAERS Safety Report 9559900 (Version 2)
Quarter: 2013Q4

REPORT INFORMATION
  Report Type: Spontaneous
  Country: US (occurrence: US)
  Receive Date: 20130927
  Receipt Date: 20131017
  Transmission Date: 20140711
  Serious: No
  Sender: FDA-Public Use
  Company Number: US-PFIZER INC-2013277072

PATIENT
  Sex: Female

DRUGS (1)
  1. EFFEXOR XR [Suspect]
     Dosage: 75MG TWO TABLETS IN THE MORNING AND ONE IN THE EVENING
     Route: 048

REACTIONS (1)
  - Drug withdrawal syndrome [Unknown]
